FAERS Safety Report 22274724 (Version 1)
Quarter: 2023Q2

REPORT INFORMATION
  Report Type: Spontaneous
  Country: CN (occurrence: None)
  Receive Date: 20230502
  Receipt Date: 20230502
  Transmission Date: 20230722
  Serious: Yes (Hospitalization)
  Sender: FDA-Public Use
  Company Number: 2023A097205

PATIENT
  Age: 3878 Week
  Sex: Female

DRUGS (1)
  1. DAPAGLIFLOZIN [Suspect]
     Active Substance: DAPAGLIFLOZIN
     Indication: Blood glucose abnormal
     Route: 048
     Dates: start: 20230312, end: 20230330

REACTIONS (1)
  - Eczema [Recovering/Resolving]

NARRATIVE: CASE EVENT DATE: 20230324
